FAERS Safety Report 19491582 (Version 3)
Quarter: 2022Q2

REPORT INFORMATION
  Report Type: Spontaneous
  Country: BR (occurrence: BR)
  Receive Date: 20210705
  Receipt Date: 20220628
  Transmission Date: 20220721
  Serious: Yes (Death, Hospitalization, Other)
  Sender: FDA-Public Use
  Company Number: BR-GLAXOSMITHKLINE-BR2021AMR143368

PATIENT

DRUGS (1)
  1. TRELEGY ELLIPTA [Suspect]
     Active Substance: FLUTICASONE FUROATE\UMECLIDINIUM BROMIDE\VILANTEROL TRIFENATATE
     Indication: Chronic obstructive pulmonary disease
     Dosage: UNK (100/62.5/25 MCG)

REACTIONS (9)
  - Intestinal gangrene [Fatal]
  - Sepsis [Fatal]
  - Gastrointestinal necrosis [Fatal]
  - Hospitalisation [Unknown]
  - Intestinal obstruction [Unknown]
  - Condition aggravated [Unknown]
  - Choking sensation [Unknown]
  - Bronchospasm [Unknown]
  - Endotracheal intubation [Unknown]

NARRATIVE: CASE EVENT DATE: 20200801
